FAERS Safety Report 11415288 (Version 1)
Quarter: 2015Q3

REPORT INFORMATION
  Report Type: Spontaneous
  Country: US (occurrence: None)
  Receive Date: 20150824
  Receipt Date: 20150824
  Transmission Date: 20151125
  Serious: No
  Sender: FDA-Public Use
  Company Number: None

PATIENT
  Age: 59 Year
  Sex: Male
  Weight: 93.9 kg

DRUGS (4)
  1. TIZANIDINE 6MG ACORDA [Suspect]
     Active Substance: TIZANIDINE
     Indication: MUSCLE SPASMS
     Route: 048
     Dates: start: 20150306, end: 20150707
  2. MULTIVITAMIN [Concomitant]
     Active Substance: VITAMINS
  3. VITAMIN B12 [Concomitant]
     Active Substance: CYANOCOBALAMIN
  4. CHOLESALCIFEROL [Concomitant]

REACTIONS (4)
  - Blood alkaline phosphatase increased [None]
  - Aspartate aminotransferase increased [None]
  - Jaundice [None]
  - Alanine aminotransferase increased [None]

NARRATIVE: CASE EVENT DATE: 20150726
